FAERS Safety Report 25593987 (Version 1)
Quarter: 2025Q3

REPORT INFORMATION
  Report Type: Spontaneous
  Country: US (occurrence: US)
  Receive Date: 20250723
  Receipt Date: 20250723
  Transmission Date: 20251020
  Serious: No
  Sender: ELI LILLY AND COMPANY
  Company Number: US-ELI_LILLY_AND_COMPANY-US202507013678

PATIENT

DRUGS (3)
  1. EMGALITY [Suspect]
     Active Substance: GALCANEZUMAB-GNLM
     Indication: Product used for unknown indication
     Route: 065
  2. ESTROGENS [Concomitant]
     Active Substance: ESTROGENS
     Indication: Product used for unknown indication
     Route: 065
  3. ESTROGENS [Concomitant]
     Active Substance: ESTROGENS
     Route: 065

REACTIONS (7)
  - Insomnia [Not Recovered/Not Resolved]
  - Night sweats [Recovered/Resolved]
  - Intrusive thoughts [Unknown]
  - Anxiety [Unknown]
  - Abdominal discomfort [Unknown]
  - Arthralgia [Unknown]
  - Treatment failure [Unknown]
